FAERS Safety Report 4393778-7 (Version None)
Quarter: 2004Q3

REPORT INFORMATION
  Report Type: 
  Country: None (occurrence: None)
  Receive Date: 20040706
  Receipt Date: 20040622
  Transmission Date: 20050211
  Serious: Yes (Death, Hospitalization)
  Sender: FDA-Public Use
  Company Number: 02100-JPN-04-0166

PATIENT
  Age: 72 Year
  Sex: Male

DRUGS (6)
  1. CILOSTAZOL [Suspect]
     Dosage: 200 MG
     Route: 048
  2. ASPIRIN [Suspect]
     Dosage: 100 MG
     Route: 048
  3. CARBOCISTEINE [Concomitant]
  4. TEPRENONE [Concomitant]
  5. PROCATEROL HCL [Concomitant]
  6. TAMSULOSIN HYDROCHLORIDE [Concomitant]

REACTIONS (4)
  - BLOOD PRESSURE DECREASED [None]
  - BLOOD PRESSURE INCREASED [None]
  - CEREBRAL HAEMORRHAGE [None]
  - FALL [None]
